FAERS Safety Report 4742670-4 (Version None)
Quarter: 2005Q3

REPORT INFORMATION
  Report Type: 
  Country: None (occurrence: None)
  Receive Date: 20050811
  Receipt Date: 20030609
  Transmission Date: 20060218
  Serious: Yes (Death)
  Sender: FDA-Public Use
  Company Number: US-JNJFOC-20040500087

PATIENT
  Sex: Male

DRUGS (4)
  1. DURAGESIC-100 [Suspect]
     Route: 062
  2. MS CONTIN [Concomitant]
     Route: 048
  3. NEURONTIN [Concomitant]
     Indication: PAIN
  4. AMBIEN [Concomitant]
     Indication: SLEEP DISORDER THERAPY

REACTIONS (4)
  - DIZZINESS [None]
  - DRUG TOXICITY [None]
  - NAUSEA [None]
  - VOMITING [None]
